FAERS Safety Report 4692971-3 (Version None)
Quarter: 2005Q2

REPORT INFORMATION
  Report Type: 
  Country: None (occurrence: None)
  Receive Date: 20050617
  Receipt Date: 20050607
  Transmission Date: 20051028
  Serious: Yes (Other)
  Sender: FDA-Public Use
  Company Number: US-JNJFOC-20050305907

PATIENT
  Sex: Female
  Weight: 79.38 kg

DRUGS (12)
  1. REMICADE [Suspect]
     Route: 042
  2. REMICADE [Suspect]
     Route: 042
  3. REMICADE [Suspect]
     Indication: CROHN'S DISEASE
     Route: 042
  4. SYNTHROID [Concomitant]
     Route: 049
  5. TRIAMTERENE AND HYDROCHLOROTHIAZIDE [Concomitant]
     Indication: BLOOD PRESSURE
  6. PLAVIX [Concomitant]
     Indication: ANTICOAGULANT THERAPY
     Route: 049
  7. CLOPIDOGREL BISULFATE [Concomitant]
     Indication: GASTROOESOPHAGEAL REFLUX DISEASE
  8. ADVAIR [Concomitant]
     Route: 055
  9. ADVAIR [Concomitant]
     Dosage: 500-50 MCG; ONE DOSE= 1 PUFF
     Route: 055
  10. ALBUTEROL [Concomitant]
  11. NABUMETONE [Concomitant]
     Route: 049
  12. PREVACID [Concomitant]
     Route: 049

REACTIONS (2)
  - BACK DISORDER [None]
  - LUNG INFILTRATION [None]
